FAERS Safety Report 17971833 (Version 2)
Quarter: 2020Q3

REPORT INFORMATION
  Report Type: Spontaneous
  Country: DE (occurrence: DE)
  Receive Date: 20200702
  Receipt Date: 20200828
  Transmission Date: 20201103
  Serious: Yes (Death, Hospitalization)
  Sender: FDA-Public Use
  Company Number: DE-TEVA-2020-DE-1793202

PATIENT
  Age: 67 Year
  Sex: Male

DRUGS (12)
  1. PRIMAQUINE [Concomitant]
     Active Substance: PRIMAQUINE PHOSPHATE
     Indication: ANTI-INFECTIVE THERAPY
     Route: 065
  2. PIPERACILLIN/TAZOBACTAM [Concomitant]
     Active Substance: PIPERACILLIN SODIUM\TAZOBACTAM SODIUM
     Indication: ANTI-INFECTIVE THERAPY
     Route: 065
  3. GANCICLOVIR. [Concomitant]
     Active Substance: GANCICLOVIR
     Indication: ANTI-INFECTIVE THERAPY
     Route: 065
  4. AZITHROMYCIN ANHYDROUS. [Concomitant]
     Active Substance: AZITHROMYCIN ANHYDROUS
     Indication: ANTI-INFECTIVE THERAPY
     Route: 065
  5. LINEZOLID. [Concomitant]
     Active Substance: LINEZOLID
     Indication: ANTI-INFECTIVE THERAPY
     Route: 065
  6. DEXAMETHASONE. [Suspect]
     Active Substance: DEXAMETHASONE
     Indication: EPENDYMOMA
     Dosage: 24 MILLIGRAM DAILY;
     Route: 065
  7. CLARITHROMYCIN. [Concomitant]
     Active Substance: CLARITHROMYCIN
     Indication: ANTI-INFECTIVE THERAPY
     Route: 065
  8. LEVOFLOXACIN. [Concomitant]
     Active Substance: LEVOFLOXACIN
     Indication: ANTI-INFECTIVE THERAPY
     Route: 065
  9. ANIDULAFUNGIN [Concomitant]
     Active Substance: ANIDULAFUNGIN
     Indication: ANTI-INFECTIVE THERAPY
     Route: 065
  10. HEPARIN [Suspect]
     Active Substance: HEPARIN SODIUM
     Indication: ANTICOAGULANT THERAPY
     Route: 065
  11. CLINDAMYCIN. [Concomitant]
     Active Substance: CLINDAMYCIN
     Indication: ANTI-INFECTIVE THERAPY
     Route: 065
  12. TRIMETHOPRIM/SULFAMETHOXAZOLE [Concomitant]
     Active Substance: SULFAMETHOXAZOLE\TRIMETHOPRIM
     Indication: ANTI-INFECTIVE THERAPY
     Route: 065

REACTIONS (24)
  - Staphylococcal infection [Unknown]
  - Acute respiratory distress syndrome [Unknown]
  - Pneumonia [Fatal]
  - Renal ischaemia [Unknown]
  - Fungal sepsis [Fatal]
  - Pancreatic necrosis [Fatal]
  - Cerebral ischaemia [Unknown]
  - Hypoxic-ischaemic encephalopathy [Fatal]
  - Legionella infection [Unknown]
  - Hepatic failure [Unknown]
  - Disseminated intravascular coagulation [Unknown]
  - Myocarditis [Fatal]
  - Acute kidney injury [Fatal]
  - Gastric ulcer [Fatal]
  - Pneumocystis jirovecii infection [Unknown]
  - Aspergillus infection [Fatal]
  - Septic shock [Unknown]
  - Pulmonary embolism [Unknown]
  - Cerebral haemorrhage [Fatal]
  - Brain herniation [Fatal]
  - Intracranial pressure increased [Unknown]
  - Candida infection [Unknown]
  - Cytomegalovirus infection [Unknown]
  - Heparin-induced thrombocytopenia [Unknown]
